FAERS Safety Report 10184907 (Version 1)
Quarter: 2014Q2

REPORT INFORMATION
  Report Type: Spontaneous
  Country: US (occurrence: None)
  Receive Date: 20140520
  Receipt Date: 20140520
  Transmission Date: 20141212
  Serious: Yes (Hospitalization)
  Sender: FDA-Public Use
  Company Number: None

PATIENT
  Age: 84 Year
  Sex: Male

DRUGS (5)
  1. DABIGATRAN [Suspect]
     Indication: ATRIAL FIBRILLATION
     Route: 048
     Dates: start: 20120803, end: 20120902
  2. ATORVASTATIN [Concomitant]
  3. METOPROLOL [Concomitant]
  4. MIRTAZAPINE [Concomitant]
  5. MULTIVITAMIN [Concomitant]

REACTIONS (2)
  - Intraventricular haemorrhage [None]
  - Fall [None]
